FAERS Safety Report 9054540 (Version 1)
Quarter: 2013Q1

REPORT INFORMATION
  Report Type: Spontaneous
  Country: NO (occurrence: NO)
  Receive Date: 20130208
  Receipt Date: 20130208
  Transmission Date: 20140127
  Serious: Yes (Other)
  Sender: FDA-Public Use
  Company Number: NO-PFIZER INC-2013001804

PATIENT
  Age: 89 Year
  Sex: Male

DRUGS (8)
  1. LIPITOR [Suspect]
     Indication: ARTERIOSCLEROSIS
     Dosage: 20 MG, DAILY
     Dates: start: 20121217
  2. CARDURAN CR [Concomitant]
     Indication: HYPERTENSION
     Dosage: 8 MG, DAILY
     Dates: start: 201212
  3. SOBRIL [Concomitant]
     Dosage: 10 MG, 1-2 HOURS BEFORE BEDTIME
     Dates: start: 2012
  4. SOBRIL [Concomitant]
     Dosage: 15 MG, 1-2 HOURS BEFORE BEDTIME
     Dates: start: 2012
  5. ZOLADEX [Concomitant]
     Indication: BENIGN NEOPLASM OF PROSTATE
     Dosage: 10.8 MG, IMPLANT ADMINISTERED EVERY THIRD MONTH IN THE ABDOMEN
     Dates: start: 201212
  6. PINEX FORTE [Concomitant]
     Dosage: CODEINE 30 MG/ PARACETAMOL 500MG, 1-2 TABLETS UP TO 4 TIMES PER DAY
     Dates: start: 201212
  7. TRIATEC [Concomitant]
     Indication: CARDIAC FAILURE
     Dosage: 10 MG, DAILY
     Dates: start: 2012
  8. METOPROLOL [Concomitant]
     Indication: HYPERTENSION
     Dosage: 50 MG, UNK

REACTIONS (4)
  - Hypertension [Unknown]
  - Atrial fibrillation [Unknown]
  - Neck pain [Recovered/Resolved]
  - Body temperature decreased [Not Recovered/Not Resolved]
